FAERS Safety Report 19039306 (Version 3)
Quarter: 2021Q2

REPORT INFORMATION
  Report Type: Spontaneous
  Country: KR (occurrence: KR)
  Receive Date: 20210322
  Receipt Date: 20210427
  Transmission Date: 20210717
  Serious: Yes (Other)
  Sender: FDA-Public Use
  Company Number: KR-ASTELLAS-2021US010315

PATIENT
  Age: 88 Year
  Sex: Male

DRUGS (2)
  1. BETMIGA [Suspect]
     Active Substance: MIRABEGRON
     Indication: POLLAKIURIA
     Route: 048
     Dates: start: 20210206, end: 20210314
  2. BETMIGA [Suspect]
     Active Substance: MIRABEGRON
     Indication: PROSTATE CANCER
     Route: 048
     Dates: start: 20210322

REACTIONS (3)
  - Product use in unapproved indication [Unknown]
  - Monoplegia [Recovered/Resolved]
  - Intervertebral disc protrusion [Recovered/Resolved]

NARRATIVE: CASE EVENT DATE: 202103
